FAERS Safety Report 10677876 (Version 5)
Quarter: 2015Q2

REPORT INFORMATION
  Report Type: Spontaneous
  Country: US (occurrence: US)
  Receive Date: 20141229
  Receipt Date: 20150612
  Transmission Date: 20150821
  Serious: Yes (Hospitalization)
  Sender: FDA-Public Use
  Company Number: US-ACTELION-A-US2014-110043

PATIENT
  Age: 60 Year
  Sex: Female

DRUGS (4)
  1. ASPIRIN. [Concomitant]
     Active Substance: ASPIRIN
  2. VELETRI [Suspect]
     Active Substance: EPOPROSTENOL
     Indication: PULMONARY ARTERIAL HYPERTENSION
     Dosage: 30 NG/KG, PER MIN
     Route: 042
     Dates: start: 20140723
  3. REVATIO [Concomitant]
     Active Substance: SILDENAFIL CITRATE
  4. COUMADIN [Concomitant]
     Active Substance: WARFARIN SODIUM

REACTIONS (13)
  - No therapeutic response [Unknown]
  - Rash generalised [Unknown]
  - Catheter site discharge [Unknown]
  - Weight decreased [Unknown]
  - Medical device change [Unknown]
  - Catheter site erythema [Unknown]
  - Pruritus [Unknown]
  - Decreased appetite [Unknown]
  - Application site reaction [Unknown]
  - Ocular hyperaemia [Unknown]
  - Malaise [Unknown]
  - Erythema [Unknown]
  - Catheter site pruritus [Unknown]
